FAERS Safety Report 8633297 (Version 5)
Quarter: 2012Q4

REPORT INFORMATION
  Report Type: 
  Country: US (occurrence: US)
  Receive Date: 20120625
  Receipt Date: 20121130
  Transmission Date: 20130627
  Serious: No
  Sender: FDA-Public Use
  Company Number: US-ASTRAZENECA-2011SE58824

PATIENT
  Age: 55 Year
  Sex: Female

DRUGS (2)
  1. SEROQUEL [Suspect]
     Indication: BIPOLAR DISORDER
     Route: 048
  2. SEROQUEL [Suspect]
     Indication: BIPOLAR DISORDER
     Route: 048

REACTIONS (12)
  - Bipolar disorder [Unknown]
  - Osteoarthritis [Unknown]
  - Arthritis [Unknown]
  - Insomnia [Unknown]
  - Food poisoning [Unknown]
  - Pain [Unknown]
  - Abnormal behaviour [Unknown]
  - Malaise [Unknown]
  - Adverse event [Unknown]
  - Vomiting [Unknown]
  - Drug dose omission [Unknown]
  - Drug ineffective [Unknown]
